FAERS Safety Report 23568907 (Version 1)
Quarter: 2024Q1

REPORT INFORMATION
  Report Type: Report from Study
  Country: US (occurrence: US)
  Receive Date: 20240227
  Receipt Date: 20240227
  Transmission Date: 20240409
  Serious: No
  Sender: FDA-Public Use
  Company Number: US-ORG100014127-2023000614

PATIENT
  Age: 59 Year
  Sex: Female

DRUGS (9)
  1. METOPIRONE [Suspect]
     Active Substance: METYRAPONE
     Indication: Adrenal gland cancer
     Dates: start: 2023
  2. AMLODIPINE [Concomitant]
     Active Substance: AMLODIPINE BESYLATE
     Indication: Product used for unknown indication
  3. CARVEDILOL TAB 6.25MG; [Concomitant]
     Indication: Product used for unknown indication
  4. DOXEPIN TAB 3MG [Concomitant]
     Indication: Product used for unknown indication
  5. ENOXAPARIN INJ 30/0.3ML; [Concomitant]
     Indication: Product used for unknown indication
  6. HYDROCHLOROT TAB 25MG [Concomitant]
     Indication: Product used for unknown indication
  7. KLOR-CON M20 TAB 20MEQ ER [Concomitant]
     Indication: Product used for unknown indication
  8. LORATADINE TAB 10MG [Concomitant]
     Indication: Product used for unknown indication
  9. PALONOSETRON INJ 0.25MG/5 [Concomitant]
     Indication: Product used for unknown indication

REACTIONS (1)
  - Off label use [Unknown]

NARRATIVE: CASE EVENT DATE: 20230101
